FAERS Safety Report 9848693 (Version 1)
Quarter: 2014Q1

REPORT INFORMATION
  Report Type: Spontaneous
  Country: US (occurrence: None)
  Receive Date: 20140127
  Receipt Date: 20140127
  Transmission Date: 20141002
  Serious: Yes (Hospitalization)
  Sender: FDA-Public Use
  Company Number: None

PATIENT
  Age: 69 Year
  Sex: Male

DRUGS (1)
  1. AMIODARONEE [Suspect]
     Route: 048

REACTIONS (9)
  - Fatigue [None]
  - Dyspnoea [None]
  - Cough [None]
  - Tachypnoea [None]
  - Toxicity to various agents [None]
  - Oxygen saturation decreased [None]
  - Respiratory failure [None]
  - Lung consolidation [None]
  - Diffuse alveolar damage [None]
